FAERS Safety Report 20740981 (Version 1)
Quarter: 2022Q2

REPORT INFORMATION
  Report Type: Spontaneous
  Country: US (occurrence: US)
  Receive Date: 20220422
  Receipt Date: 20220422
  Transmission Date: 20220721
  Serious: No
  Sender: FDA-Public Use
  Company Number: US-PFIZER INC-202101091049

PATIENT
  Age: 57 Year
  Sex: Female
  Weight: 85.28 kg

DRUGS (8)
  1. CHANTIX [Suspect]
     Active Substance: VARENICLINE TARTRATE
     Indication: Smoking cessation therapy
     Dosage: 0.5 MG, 1X/DAY (IN THE MORNING)
     Dates: start: 202105
  2. CHANTIX [Suspect]
     Active Substance: VARENICLINE TARTRATE
     Dosage: 0.5 MG, 2X/DAY (IN THE MORNING AND EVENING)
  3. CHANTIX [Suspect]
     Active Substance: VARENICLINE TARTRATE
     Dosage: 1 MG, 2X/DAY
     Dates: end: 202106
  4. SEROQUEL [Concomitant]
     Active Substance: QUETIAPINE FUMARATE
     Indication: Bipolar disorder
     Dosage: UNK, 2X/DAY (300 MG IN THE MORNING AND 400 MG AT NIGHT TIME)
  5. DOXEPIN [Concomitant]
     Active Substance: DOXEPIN
     Indication: Bipolar disorder
     Dosage: 100 MG
  6. DEPAKOTE [Concomitant]
     Active Substance: DIVALPROEX SODIUM
     Indication: Bipolar disorder
     Dosage: 250 MG
  7. KEPPRA XR [Concomitant]
     Active Substance: LEVETIRACETAM
     Indication: Seizure
     Dosage: 750 MG
  8. COVID-19 VACCINE [Concomitant]

REACTIONS (2)
  - Recalled product administered [Unknown]
  - Headache [Not Recovered/Not Resolved]

NARRATIVE: CASE EVENT DATE: 20210501
